FAERS Safety Report 24055581 (Version 1)
Quarter: 2024Q3

REPORT INFORMATION
  Report Type: Report from Study
  Country: US (occurrence: US)
  Receive Date: 20240705
  Receipt Date: 20240705
  Transmission Date: 20241017
  Serious: Yes (Other)
  Sender: ABBVIE
  Company Number: US-ABBVIE-5824590

PATIENT
  Age: 64 Year
  Sex: Female

DRUGS (1)
  1. RINVOQ [Suspect]
     Active Substance: UPADACITINIB
     Indication: Rheumatoid arthritis
     Route: 048
     Dates: start: 20221018, end: 202406

REACTIONS (3)
  - Shoulder arthroplasty [Recovering/Resolving]
  - Knee arthroplasty [Unknown]
  - Infection [Unknown]

NARRATIVE: CASE EVENT DATE: 20240626
